FAERS Safety Report 4385117-2 (Version None)
Quarter: 2004Q2

REPORT INFORMATION
  Report Type: 
  Country: None (occurrence: None)
  Receive Date: 20040624
  Receipt Date: 20040624
  Transmission Date: 20050107
  Serious: No
  Sender: FDA-Public Use
  Company Number: None

PATIENT
  Age: 89 Year
  Sex: Male

DRUGS (1)
  1. GEODON [Suspect]
     Dosage: 20 MG DAILY IM
     Route: 030
     Dates: start: 20030323, end: 20030326

REACTIONS (1)
  - UNEVALUABLE EVENT [None]
